FAERS Safety Report 4690111-8 (Version None)
Quarter: 2005Q2

REPORT INFORMATION
  Report Type: 
  Country: None (occurrence: None)
  Receive Date: 20050613
  Receipt Date: 20050607
  Transmission Date: 20051028
  Serious: Yes (Life-Threatening, Hospitalization)
  Sender: FDA-Public Use
  Company Number: BRO-008724

PATIENT

DRUGS (1)
  1. IOPAMIDOL / IOPAMIRO 370 (BATCH #(S): E4710) [Suspect]
     Indication: ANGIOGRAM
     Dates: start: 20050531, end: 20050531

REACTIONS (7)
  - ARRHYTHMIA [None]
  - BRONCHOSPASM [None]
  - CEREBRAL INFARCTION [None]
  - HEPATIC ENZYME INCREASED [None]
  - HYPERTENSION [None]
  - LOSS OF CONSCIOUSNESS [None]
  - MUSCLE SPASMS [None]
